FAERS Safety Report 18405576 (Version 1)
Quarter: 2020Q4

REPORT INFORMATION
  Report Type: Spontaneous
  Country: US (occurrence: US)
  Receive Date: 20201020
  Receipt Date: 20201020
  Transmission Date: 20210114
  Serious: No
  Sender: FDA-Public Use
  Company Number: US-PFIZER INC-2020401513

PATIENT
  Age: 62 Year
  Sex: Female

DRUGS (2)
  1. LETROZOLE. [Concomitant]
     Active Substance: LETROZOLE
     Dosage: UNK
     Dates: start: 202009
  2. IBRANCE [Suspect]
     Active Substance: PALBOCICLIB
     Indication: BREAST CANCER FEMALE
     Dosage: 125 MG, CYCLIC (ONCE DAILY ON DAYS 1 TO 21, FOLLOWED BY 7 DAYS OF REST, REPEATED EVERY 28 DAYS)
     Route: 048
     Dates: start: 20201010

REACTIONS (2)
  - Pruritus [Unknown]
  - Feeling abnormal [Unknown]
